FAERS Safety Report 9784799 (Version 2)
Quarter: 2013Q4

REPORT INFORMATION
  Report Type: Spontaneous
  Country: US (occurrence: US)
  Receive Date: 20131227
  Receipt Date: 20131227
  Transmission Date: 20140711
  Serious: Yes (Death, Hospitalization, Other)
  Sender: FDA-Public Use
  Company Number: US-BIOGENIDEC-2007BI009302

PATIENT
  Age: 20 Year
  Sex: Female
  Weight: 127 kg

DRUGS (3)
  1. AVONEX [Suspect]
     Indication: MULTIPLE SCLEROSIS
     Dates: start: 20050106
  2. PROZAC [Concomitant]
     Indication: DEPRESSION
  3. BIRTH CONTROL INJECTION [Concomitant]
     Indication: PRODUCT USED FOR UNKNOWN INDICATION

REACTIONS (20)
  - Death [Fatal]
  - Convulsion [Unknown]
  - Nausea [Unknown]
  - Vomiting [Unknown]
  - Headache [Unknown]
  - Urinary tract disorder [Unknown]
  - Central nervous system infection [Fatal]
  - Cardiac arrest [Fatal]
  - Progressive multifocal leukoencephalopathy [Fatal]
  - Hepatitis [Unknown]
  - Pancreatitis [Unknown]
  - Meningitis viral [Unknown]
  - Grand mal convulsion [Unknown]
  - Panic attack [Unknown]
  - Pain [Unknown]
  - Pyrexia [Unknown]
  - Muscle twitching [Unknown]
  - White blood cell count increased [Unknown]
  - Weight decreased [Unknown]
  - Dehydration [Unknown]
